FAERS Safety Report 17211276 (Version 1)
Quarter: 2019Q4

REPORT INFORMATION
  Report Type: Spontaneous
  Country: DE (occurrence: DE)
  Receive Date: 20191228
  Receipt Date: 20191228
  Transmission Date: 20200122
  Serious: Yes (Hospitalization, Other)
  Sender: FDA-Public Use
  Company Number: DE-DRREDDYS-GER/GER/09/0000932

PATIENT
  Age: 23 Year
  Sex: Female

DRUGS (6)
  1. FLUOXETINE [Suspect]
     Active Substance: FLUOXETINE HYDROCHLORIDE
     Indication: DEPRESSION
     Route: 048
  2. QUETIAPINE. [Interacting]
     Active Substance: QUETIAPINE
     Indication: EMOTIONAL DISORDER
  3. AMISULPRIDE [Concomitant]
     Active Substance: AMISULPRIDE
     Indication: IRRITABILITY
  4. QUETIAPINE. [Interacting]
     Active Substance: QUETIAPINE
     Indication: IRRITABILITY
     Route: 048
  5. QUETIAPINE. [Interacting]
     Active Substance: QUETIAPINE
     Indication: HYPERSENSITIVITY
  6. QUETIAPINE. [Interacting]
     Active Substance: QUETIAPINE
     Indication: DISTURBANCE IN ATTENTION

REACTIONS (7)
  - Myalgia [Recovered/Resolved]
  - Alanine aminotransferase increased [Recovered/Resolved]
  - Drug interaction [Recovered/Resolved]
  - Galactorrhoea [Unknown]
  - Aspartate aminotransferase increased [Recovered/Resolved]
  - Blood creatinine increased [Recovered/Resolved]
  - Rhabdomyolysis [Recovered/Resolved]
